FAERS Safety Report 12809000 (Version 1)
Quarter: 2016Q4

REPORT INFORMATION
  Report Type: Spontaneous
  Country: US (occurrence: US)
  Receive Date: 20161004
  Receipt Date: 20161004
  Transmission Date: 20170207
  Serious: No
  Sender: FDA-Public Use
  Company Number: US-SHIRE-US201613966

PATIENT
  Sex: Female
  Weight: 123.36 kg

DRUGS (1)
  1. GATTEX [Suspect]
     Active Substance: TEDUGLUTIDE\WATER
     Indication: MALABSORPTION
     Dosage: 6.2 MG, UNKNOWN
     Route: 058

REACTIONS (2)
  - Bowel movement irregularity [Unknown]
  - Constipation [Unknown]
